FAERS Safety Report 6774245-X (Version None)
Quarter: 2010Q2

REPORT INFORMATION
  Report Type: 
  Country: None (occurrence: None)
  Receive Date: 20100617
  Receipt Date: 20100608
  Transmission Date: 20101027
  Serious: Yes (Hospitalization)
  Sender: FDA-Public Use
  Company Number: IT-PFIZER INC-2010071917

PATIENT
  Sex: Female

DRUGS (1)
  1. ALPRAZOLAM [Suspect]
     Dosage: UNK

REACTIONS (6)
  - ASTHENIA [None]
  - ATAXIA [None]
  - DIZZINESS [None]
  - HYPOKINESIA [None]
  - LETHARGY [None]
  - RESPIRATORY DEPRESSION [None]
